FAERS Safety Report 8519680-4 (Version None)
Quarter: 2012Q3

REPORT INFORMATION
  Report Type: 
  Country: None (occurrence: None)
  Receive Date: 20120719
  Receipt Date: 20120705
  Transmission Date: 20120928
  Serious: Yes (Other)
  Sender: FDA-Public Use
  Company Number: DE-AMGEN-DEUSP2012043304

PATIENT
  Age: 43 Year
  Sex: Female

DRUGS (3)
  1. VOLTAREN [Concomitant]
     Dosage: UNK
  2. HYDROXYCHLOROQUINE SULFATE [Concomitant]
     Dosage: UNK
  3. ENBREL [Suspect]
     Indication: RHEUMATOID ARTHRITIS
     Dosage: 50 MG, WEEKLY
     Route: 058
     Dates: start: 20110510

REACTIONS (5)
  - PAIN [None]
  - OROPHARYNGEAL PAIN [None]
  - CARPAL TUNNEL SYNDROME [None]
  - MENORRHAGIA [None]
  - DRUG EFFECT DECREASED [None]
